FAERS Safety Report 21136226 (Version 17)
Quarter: 2023Q4

REPORT INFORMATION
  Report Type: Report from Study
  Country: NL (occurrence: NL)
  Receive Date: 20220727
  Receipt Date: 20231023
  Transmission Date: 20240109
  Serious: Yes (Hospitalization)
  Sender: FDA-Public Use
  Company Number: NL-NOVARTISPH-NVSC2022NL166882

PATIENT
  Age: 32 Year
  Sex: Male
  Weight: 87.6 kg

DRUGS (12)
  1. VIJOICE [Suspect]
     Active Substance: ALPELISIB
     Indication: PIK3CA related overgrowth spectrum
     Dosage: UNK
     Route: 048
     Dates: start: 20220707, end: 20220722
  2. VIJOICE [Suspect]
     Active Substance: ALPELISIB
     Dosage: UNK
     Route: 048
     Dates: start: 20220810
  3. ACETAMINOPHEN [Concomitant]
     Active Substance: ACETAMINOPHEN
     Indication: Pain in extremity
     Dosage: UNK
     Route: 065
     Dates: start: 1990
  4. ACETAMINOPHEN [Concomitant]
     Active Substance: ACETAMINOPHEN
     Indication: Headache
  5. MAGNESIUM [Concomitant]
     Active Substance: MAGNESIUM
     Indication: General physical condition
     Dosage: UNK
     Route: 065
     Dates: start: 202104
  6. CHOLECALCIFEROL [Concomitant]
     Active Substance: CHOLECALCIFEROL
     Indication: General physical condition
     Dosage: UNK
     Route: 065
     Dates: start: 202104
  7. APIXABAN [Concomitant]
     Active Substance: APIXABAN
     Indication: Fibrin D dimer increased
     Dosage: UNK
     Route: 065
     Dates: start: 20211209
  8. BECLOMETHASONE\FORMOTEROL [Concomitant]
     Active Substance: BECLOMETHASONE\FORMOTEROL
     Indication: Asthma
     Dosage: UNK
     Route: 065
     Dates: start: 202202
  9. AUGMENTIN [Concomitant]
     Active Substance: AMOXICILLIN\CLAVULANATE POTASSIUM
     Indication: Erysipelas
     Dosage: UNK
     Route: 065
     Dates: start: 20220207
  10. CICLOPIROX [Concomitant]
     Active Substance: CICLOPIROX
     Indication: Erysipelas
     Dosage: UNK
     Route: 065
     Dates: start: 20220207
  11. FLUCLOXACILLIN [Concomitant]
     Active Substance: FLUCLOXACILLIN
     Indication: Cellulitis
     Dosage: UNK
     Route: 065
     Dates: start: 20220604, end: 20220606
  12. CLINDAMYCIN [Concomitant]
     Active Substance: CLINDAMYCIN
     Indication: Cellulitis
     Dosage: UNK
     Route: 065
     Dates: start: 20220606, end: 20220614

REACTIONS (1)
  - Cellulitis [Recovered/Resolved]

NARRATIVE: CASE EVENT DATE: 20220721
